FAERS Safety Report 16850745 (Version 1)
Quarter: 2019Q3

REPORT INFORMATION
  Report Type: Spontaneous
  Country: US (occurrence: US)
  Receive Date: 20190925
  Receipt Date: 20190925
  Transmission Date: 20191005
  Serious: No
  Sender: FDA-Public Use
  Company Number: US-THERAPEUTICSMD-2019TMD02905

PATIENT
  Sex: Female

DRUGS (3)
  1. IMVEXXY [Suspect]
     Active Substance: ESTRADIOL
     Indication: URINARY TRACT INFECTION
     Dosage: UNK
     Route: 067
  2. IMVEXXY [Suspect]
     Active Substance: ESTRADIOL
     Indication: KIDNEY INFECTION
     Dosage: UNK
     Route: 067
  3. IMVEXXY [Suspect]
     Active Substance: ESTRADIOL
     Indication: CYSTITIS

REACTIONS (2)
  - Drug ineffective for unapproved indication [Not Recovered/Not Resolved]
  - Vaginal disorder [Unknown]
